FAERS Safety Report 16084777 (Version 1)
Quarter: 2019Q1

REPORT INFORMATION
  Report Type: Spontaneous
  Country: US (occurrence: US)
  Receive Date: 20190318
  Receipt Date: 20190318
  Transmission Date: 20190418
  Serious: No
  Sender: FDA-Public Use
  Company Number: US-AVADEL SPECIALTY PHARMACEUTICALS, LLC-2019AVA00059

PATIENT
  Age: 81 Year
  Sex: Male
  Weight: 79.82 kg

DRUGS (5)
  1. UNKNOWN MEDICATION [Concomitant]
     Active Substance: UNSPECIFIED INGREDIENT
  2. NOCTIVA [Suspect]
     Active Substance: DESMOPRESSIN ACETATE
     Indication: NOCTURIA
     Dosage: 0.83 ?G, 2X/DAY APPROXIMATELY 30 MINUTES BEFORE BED
     Route: 045
     Dates: start: 20181219
  3. UNKNOWN HIGH CHOLESTORAL MEDICATION [Concomitant]
  4. UNKNOWN HIGH BLOOD PRESSURE MEDICATION [Concomitant]
  5. UNKNOWN PROSTATE MEDICATION [Concomitant]
     Active Substance: UNSPECIFIED INGREDIENT

REACTIONS (6)
  - Dry mouth [Not Recovered/Not Resolved]
  - Rash [Not Recovered/Not Resolved]
  - Dry throat [Not Recovered/Not Resolved]
  - Nasal discomfort [Not Recovered/Not Resolved]
  - Incorrect dose administered [Unknown]
  - Product quality issue [Not Recovered/Not Resolved]

NARRATIVE: CASE EVENT DATE: 20181219
